FAERS Safety Report 9929370 (Version 6)
Quarter: 2014Q4

REPORT INFORMATION
  Report Type: Report from Study
  Country: AU (occurrence: AU)
  Receive Date: 20140227
  Receipt Date: 20141229
  Transmission Date: 20150529
  Serious: Yes (Hospitalization, Other)
  Sender: FDA-Public Use
  Company Number: PHHY2014AU022185

PATIENT
  Age: 52 Year
  Sex: Female
  Weight: 65.5 kg

DRUGS (15)
  1. CERTICAN [Suspect]
     Active Substance: EVEROLIMUS
     Indication: IDIOPATHIC PULMONARY FIBROSIS
     Dosage: 8 MG, QD
     Route: 048
     Dates: start: 20030528
  2. CERTICAN [Suspect]
     Active Substance: EVEROLIMUS
     Dosage: 8 MG, QD
     Route: 048
     Dates: start: 20030822
  3. CERTICAN [Suspect]
     Active Substance: EVEROLIMUS
     Dosage: 1 MG, BID
     Route: 048
     Dates: start: 2006, end: 201301
  4. CERTICAN [Suspect]
     Active Substance: EVEROLIMUS
     Dosage: 4 MG, QD
     Route: 048
     Dates: start: 20030612
  5. CERTICAN [Suspect]
     Active Substance: EVEROLIMUS
     Dosage: 3 MG, BID
     Route: 048
     Dates: start: 20030919
  6. CERTICAN [Suspect]
     Active Substance: EVEROLIMUS
     Dosage: 2 MG, QD
     Route: 048
     Dates: start: 201301
  7. CERTICAN [Suspect]
     Active Substance: EVEROLIMUS
     Dosage: 1 MG, BID
     Route: 048
     Dates: end: 20141013
  8. CERTICAN [Suspect]
     Active Substance: EVEROLIMUS
     Dosage: 3 MG, BID
     Route: 048
  9. ZOLOFT [Concomitant]
     Active Substance: SERTRALINE HYDROCHLORIDE
     Indication: DEPRESSION
     Dosage: 200 MG, UNK
     Route: 065
  10. CERTICAN [Suspect]
     Active Substance: EVEROLIMUS
     Dosage: 1-2 MG, BID
     Route: 048
     Dates: end: 20060525
  11. CERTICAN [Suspect]
     Active Substance: EVEROLIMUS
     Dosage: 1 MG, BID
     Route: 048
     Dates: start: 20140221
  12. THYROXIN [Concomitant]
     Active Substance: LEVOTHYROXINE
     Indication: HYPOTHYROIDISM
     Dosage: 200 UG/DAY
     Route: 048
  13. CERTICAN [Suspect]
     Active Substance: EVEROLIMUS
     Dosage: 1 MG, BID
     Route: 048
     Dates: start: 201304
  14. CERTICAN [Suspect]
     Active Substance: EVEROLIMUS
     Dosage: 2 MG, QD
     Route: 048
     Dates: start: 20130917
  15. FISH OIL [Concomitant]
     Active Substance: FISH OIL
     Indication: PRODUCT USED FOR UNKNOWN INDICATION
     Dosage: UNK
     Route: 065
     Dates: start: 200612

REACTIONS (16)
  - Disease progression [Not Recovered/Not Resolved]
  - Osteoarthritis [Unknown]
  - Idiopathic pulmonary fibrosis [Recovered/Resolved]
  - Hypoxia [Recovered/Resolved]
  - Interstitial lung disease [Unknown]
  - Condition aggravated [Unknown]
  - Dental caries [Recovered/Resolved]
  - Mouth ulceration [Not Recovered/Not Resolved]
  - Serotonin syndrome [Unknown]
  - Actinic keratosis [Recovered/Resolved]
  - Pulmonary fibrosis [Not Recovered/Not Resolved]
  - Hypercholesterolaemia [Unknown]
  - Product use issue [Unknown]
  - Non-cardiac chest pain [Unknown]
  - Sinusitis [Unknown]
  - Oral herpes [Not Recovered/Not Resolved]

NARRATIVE: CASE EVENT DATE: 20030612
